FAERS Safety Report 7821171-0 (Version None)
Quarter: 2011Q4

REPORT INFORMATION
  Report Type: 
  Country: None (occurrence: None)
  Receive Date: 20111018
  Receipt Date: 20110708
  Transmission Date: 20120403
  Serious: No
  Sender: FDA-Public Use
  Company Number: US-ASTRAZENECA-2011SE08405

PATIENT
  Age: 70 Year
  Sex: Male

DRUGS (6)
  1. SYMBICORT [Suspect]
     Dosage: 160/ 4.5 MCG 2 PUFFS TWO TIMES A DAY
     Route: 055
     Dates: start: 20100601
  2. SYMBICORT [Suspect]
     Dosage: 160/ 4.5 MCG 2 PUFFS TWO TIMES A DAY
     Route: 055
     Dates: start: 20100601
  3. SYMBICORT [Suspect]
     Dosage: 160/ 4.5 MCG 2 PUFFS TWO TIMES A DAY
     Route: 055
     Dates: start: 20100601
  4. SYMBICORT [Suspect]
     Indication: ASTHMA
     Dosage: 1 PUFF TWO TIMES A DAY
     Route: 055
  5. SYMBICORT [Suspect]
     Indication: WHEEZING
     Dosage: 1 PUFF TWO TIMES A DAY
     Route: 055
  6. SYMBICORT [Suspect]
     Indication: COUGH
     Dosage: 1 PUFF TWO TIMES A DAY
     Route: 055

REACTIONS (4)
  - INCORRECT DOSE ADMINISTERED [None]
  - WHEEZING [None]
  - COUGH [None]
  - DRUG DOSE OMISSION [None]
